FAERS Safety Report 9543205 (Version 1)
Quarter: 2013Q3

REPORT INFORMATION
  Report Type: Spontaneous
  Country: US (occurrence: US)
  Receive Date: 20130923
  Receipt Date: 20130923
  Transmission Date: 20140515
  Serious: Yes (Death, Hospitalization, Other)
  Sender: FDA-Public Use
  Company Number: US-NAPPMUNDI-USA-2011-0080356

PATIENT
  Age: 68 Year
  Sex: Female

DRUGS (11)
  1. DILAUDID TABLET [Suspect]
     Indication: NECK PAIN
     Dosage: UNK
     Dates: start: 200805
  2. DILAUDID TABLET [Suspect]
     Indication: MUSCULOSKELETAL PAIN
  3. MORPHINE SULFATE (SIMILAR TO NDA 19-516) [Suspect]
     Indication: NECK PAIN
     Dosage: UNK
     Dates: start: 200805
  4. MORPHINE SULFATE (SIMILAR TO NDA 19-516) [Suspect]
     Indication: MUSCULOSKELETAL PAIN
  5. TORADOL [Suspect]
     Indication: NECK PAIN
     Dosage: UNK
     Dates: start: 200805
  6. TORADOL [Suspect]
     Indication: MUSCULOSKELETAL PAIN
  7. DURAGESIC /00174601/ [Suspect]
     Indication: NECK PAIN
     Dosage: 50 MCG, UNK
     Dates: start: 200805
  8. DURAGESIC /00174601/ [Suspect]
     Indication: MUSCULOSKELETAL PAIN
     Dosage: 75 MCG, UNK
     Dates: start: 200805
  9. DURAGESIC /00174601/ [Suspect]
     Dosage: 100 MCG, UNK
     Dates: start: 200805
  10. NEURONTIN [Suspect]
     Indication: NECK PAIN
     Dosage: UNK
     Dates: start: 200805
  11. NEURONTIN [Suspect]
     Indication: MUSCULOSKELETAL PAIN

REACTIONS (2)
  - Prescribed overdose [Fatal]
  - Respiratory arrest [Unknown]
